FAERS Safety Report 22114654 (Version 2)
Quarter: 2023Q2

REPORT INFORMATION
  Report Type: Spontaneous
  Country: US (occurrence: US)
  Receive Date: 20230320
  Receipt Date: 20230522
  Transmission Date: 20230721
  Serious: Yes (Other)
  Sender: FDA-Public Use
  Company Number: US-BRISTOL-MYERS SQUIBB COMPANY-2023-039879

PATIENT
  Age: 69 Year
  Sex: Female

DRUGS (1)
  1. LENALIDOMIDE [Suspect]
     Active Substance: LENALIDOMIDE
     Indication: Plasma cell myeloma
     Route: 048
     Dates: start: 20220311

REACTIONS (5)
  - Arthralgia [Recovering/Resolving]
  - Pyrexia [Recovered/Resolved]
  - Fatigue [Unknown]
  - Off label use [Unknown]
  - Product dose omission issue [Unknown]
